FAERS Safety Report 12255590 (Version 2)
Quarter: 2016Q2

REPORT INFORMATION
  Report Type: Spontaneous
  Country: US (occurrence: US)
  Receive Date: 20160412
  Receipt Date: 20160422
  Transmission Date: 20160815
  Serious: No
  Sender: FDA-Public Use
  Company Number: US-009507513-1603USA010785

PATIENT
  Sex: Female

DRUGS (1)
  1. IMPLANON [Suspect]
     Active Substance: ETONOGESTREL
     Dosage: 1 ROD /EVERY 3 YEARS
     Route: 059
     Dates: start: 20110112

REACTIONS (4)
  - Device deployment issue [Unknown]
  - No adverse event [Unknown]
  - Complication associated with device [Unknown]
  - Device dislocation [Unknown]
